FAERS Safety Report 22585966 (Version 1)
Quarter: 2023Q2

REPORT INFORMATION
  Report Type: Spontaneous
  Country: PL (occurrence: PL)
  Receive Date: 20230610
  Receipt Date: 20230610
  Transmission Date: 20230721
  Serious: Yes (Other)
  Sender: FDA-Public Use
  Company Number: PL-TEVA-2023-PL-2895035

PATIENT
  Sex: Male

DRUGS (12)
  1. VENLAFAXINE [Suspect]
     Active Substance: VENLAFAXINE HYDROCHLORIDE
     Indication: Bipolar disorder
     Dosage: 75 MG TO 150 MG/24 H
     Route: 065
  2. VENLAFAXINE [Suspect]
     Active Substance: VENLAFAXINE HYDROCHLORIDE
     Dosage: 300 MG/24 H
     Route: 065
  3. ZOLPIDEM [Suspect]
     Active Substance: ZOLPIDEM TARTRATE
     Indication: Bipolar disorder
     Dosage: 10 MG
     Route: 065
  4. LORAZEPAM [Suspect]
     Active Substance: LORAZEPAM
     Indication: Bipolar disorder
     Dosage: 0.5-1 MG
     Route: 065
  5. LORAZEPAM [Suspect]
     Active Substance: LORAZEPAM
     Dosage: IN DOSES ESCALATING TO 8 MG/24 H
  6. LORAZEPAM [Suspect]
     Active Substance: LORAZEPAM
     Dosage: WAS LOWERED TO  2.5 MG/24 H
  7. LITHIUM CARBONATE [Suspect]
     Active Substance: LITHIUM CARBONATE
     Indication: Bipolar disorder
     Dosage: 1500 MG/24 H
     Route: 065
  8. LAMOTRIGINE [Concomitant]
     Active Substance: LAMOTRIGINE
     Indication: Bipolar disorder
     Dosage: 150 MG/24 H
     Route: 065
  9. REBOXETINE [Concomitant]
     Active Substance: REBOXETINE
     Indication: Bipolar disorder
     Dosage: 4 MG/24 H
     Route: 065
  10. REBOXETINE [Concomitant]
     Active Substance: REBOXETINE
     Dosage: 8 MG/24H
     Route: 065
  11. PAROXETINE [Concomitant]
     Active Substance: PAROXETINE
     Indication: Bipolar disorder
     Dosage: INCREASING DOSES UP TO 30 MG
     Route: 065
  12. QUETIAPINE [Concomitant]
     Active Substance: QUETIAPINE
     Indication: Bipolar disorder
     Dosage: AT DOSES INCREASING UP TO 300 MG/24 H.
     Route: 065

REACTIONS (3)
  - Drug dependence [Unknown]
  - Drug ineffective [Unknown]
  - Drug withdrawal syndrome [Recovering/Resolving]
